FAERS Safety Report 24135436 (Version 1)
Quarter: 2024Q3

REPORT INFORMATION
  Report Type: Spontaneous
  Country: GB (occurrence: GB)
  Receive Date: 20240725
  Receipt Date: 20240725
  Transmission Date: 20241017
  Serious: Yes (Other)
  Sender: ROCHE
  Company Number: GB-ROCHE-10000006469

PATIENT

DRUGS (1)
  1. EVRYSDI [Suspect]
     Active Substance: RISDIPLAM
     Indication: Product used for unknown indication
     Route: 065

REACTIONS (6)
  - Muscle contracture [Recovering/Resolving]
  - Joint range of motion decreased [Recovering/Resolving]
  - Joint stiffness [Recovering/Resolving]
  - Pain in extremity [Unknown]
  - Muscular weakness [Unknown]
  - Hemiparesis [Unknown]
